FAERS Safety Report 19433255 (Version 1)
Quarter: 2021Q2

REPORT INFORMATION
  Report Type: Spontaneous
  Country: SK (occurrence: SK)
  Receive Date: 20210617
  Receipt Date: 20210617
  Transmission Date: 20210717
  Serious: Yes (Hospitalization, Other)
  Sender: FDA-Public Use
  Company Number: SK-TEVA-2021-SK-1922566

PATIENT
  Sex: Female

DRUGS (2)
  1. ARAC [Suspect]
     Active Substance: CYTARABINE
     Route: 065
  2. METHOTREXATE. [Suspect]
     Active Substance: METHOTREXATE
     Dosage: 2ND CYCLE
     Route: 065

REACTIONS (2)
  - Perirectal abscess [Unknown]
  - Haematotoxicity [Unknown]
